FAERS Safety Report 9964075 (Version 2)
Quarter: 2014Q2

REPORT INFORMATION
  Report Type: Spontaneous
  Country: US (occurrence: US)
  Receive Date: 20140305
  Receipt Date: 20140410
  Transmission Date: 20141212
  Serious: No
  Sender: FDA-Public Use
  Company Number: US-RB-064014-14

PATIENT
  Age: 57 Year
  Sex: Male

DRUGS (5)
  1. SUBOXONE FILM [Suspect]
     Dosage: SUBOXONE FILM
     Route: 060
     Dates: start: 2011, end: 201304
  2. SUBOXONE FILM [Suspect]
     Indication: DRUG DEPENDENCE
     Dosage: SUBOXONE FILM
     Route: 060
     Dates: start: 201304, end: 20140214
  3. SUBOXONE FILM [Suspect]
     Dosage: SUBOXONE FILM; THE PHYSICIAN STARTED WEANING HIM AND ADVISED TO TAKE 1/2 STRIP DAILY
     Route: 060
     Dates: start: 20140215, end: 20140220
  4. SUBOXONE FILM [Suspect]
     Dosage: SUBOXONE FILM
     Route: 060
     Dates: start: 20140306
  5. VARIOUS ANTI-INFLAMMATORIES [Concomitant]
     Indication: PAIN
     Dosage: 2 TABLETS AS NEEDED
     Route: 048
     Dates: start: 2011

REACTIONS (12)
  - Therapeutic response changed [Not Recovered/Not Resolved]
  - Drug ineffective [Recovered/Resolved]
  - Drug withdrawal syndrome [Recovered/Resolved]
  - Pain [Recovered/Resolved]
  - Malaise [Recovered/Resolved]
  - Chills [Recovered/Resolved]
  - Diarrhoea [Recovered/Resolved]
  - Hyperhidrosis [Recovered/Resolved]
  - Feeling abnormal [Recovered/Resolved]
  - Wrong technique in drug usage process [Recovered/Resolved]
  - Extra dose administered [Recovered/Resolved]
  - Frustration [Recovered/Resolved]
